FAERS Safety Report 5063816-7 (Version None)
Quarter: 2006Q3

REPORT INFORMATION
  Report Type: 
  Country: None (occurrence: None)
  Receive Date: 20060703
  Receipt Date: 20060413
  Transmission Date: 20061208
  Serious: No
  Sender: FDA-Public Use
  Company Number: 2006S1003427

PATIENT
  Age: 26 Year
  Sex: Female
  Weight: 178.6 kg

DRUGS (8)
  1. CLOZAPINE [Suspect]
     Indication: PSYCHOTIC DISORDER
     Dosage: 300 MG;QD;PO
     Route: 048
     Dates: start: 20060328
  2. CLOZAPINE [Suspect]
     Indication: SCHIZOAFFECTIVE DISORDER
     Dosage: 300 MG;QD;PO
     Route: 048
     Dates: start: 20060328
  3. CLOZAPINE [Suspect]
     Indication: SCHIZOPHRENIA
     Dosage: 300 MG;QD;PO
     Route: 048
     Dates: start: 20060328
  4. TRILEPTAL [Suspect]
     Indication: SCHIZOPHRENIA
     Dosage: SEE IMAGE
     Route: 048
     Dates: start: 20051205, end: 20060418
  5. TRILEPTAL [Suspect]
     Indication: SCHIZOPHRENIA
     Dosage: SEE IMAGE
     Route: 048
     Dates: start: 20051205, end: 20060418
  6. PANTOPRAZOLE SODIUM [Concomitant]
  7. LITHIUM CARBONATE [Concomitant]
  8. VALPORATE SEMISODIUM [Concomitant]

REACTIONS (1)
  - GRANULOCYTOPENIA [None]
